FAERS Safety Report 11517990 (Version 3)
Quarter: 2015Q4

REPORT INFORMATION
  Report Type: Spontaneous
  Country: GB (occurrence: GB)
  Receive Date: 20150917
  Receipt Date: 20151014
  Transmission Date: 20160304
  Serious: Yes (Death)
  Sender: FDA-Public Use
  Company Number: GB-TEVA-594163ISR

PATIENT
  Age: 37 Year
  Sex: Male

DRUGS (8)
  1. PARACETAMOL [Suspect]
     Active Substance: ACETAMINOPHEN
  2. NEFOPAM [Suspect]
     Active Substance: NEFOPAM
  3. CITALOPRAM [Suspect]
     Active Substance: CITALOPRAM HYDROBROMIDE
  4. DIAZEPAM. [Suspect]
     Active Substance: DIAZEPAM
  5. AMITRIPTYLINE [Suspect]
     Active Substance: AMITRIPTYLINE
  6. CAFFEINE. [Suspect]
     Active Substance: CAFFEINE
  7. GABAPENTIN. [Suspect]
     Active Substance: GABAPENTIN
  8. NICOTINE. [Suspect]
     Active Substance: NICOTINE

REACTIONS (2)
  - Toxicity to various agents [Fatal]
  - Arteriosclerosis [Fatal]
